FAERS Safety Report 7952217-7 (Version None)
Quarter: 2011Q4

REPORT INFORMATION
  Report Type: 
  Country: None (occurrence: None)
  Receive Date: 20111130
  Receipt Date: 20111130
  Transmission Date: 20120403
  Serious: Yes (Other)
  Sender: FDA-Public Use
  Company Number: None

PATIENT
  Age: 65 Year
  Sex: Male

DRUGS (1)
  1. LACTOPEROXIDASE + LYSOZYME (FORMULATION UNKNOWN) (LACTOPEROXIDASE + LY [Suspect]

REACTIONS (1)
  - DRUG HYPERSENSITIVITY [None]
